FAERS Safety Report 5412064-7 (Version None)
Quarter: 2007Q3

REPORT INFORMATION
  Report Type: 
  Country: None (occurrence: None)
  Receive Date: 20070809
  Receipt Date: 20070730
  Transmission Date: 20080115
  Serious: Yes (Other)
  Sender: FDA-Public Use
  Company Number: 17162

PATIENT
  Age: 14 Year
  Sex: Female

DRUGS (4)
  1. METHOTREXATE [Suspect]
     Indication: BONE SARCOMA
     Dosage: 12 G/M2 PER_CYCLE IV
     Route: 042
  2. RADIOGRAPHIC CONTRAST [Suspect]
     Indication: COMPUTERISED TOMOGRAM
  3. CISPLATIN [Concomitant]
  4. DOXORUBICIN [Concomitant]

REACTIONS (16)
  - ABDOMINAL MASS [None]
  - BONE MARROW FAILURE [None]
  - DRUG INTERACTION [None]
  - DRUG TOXICITY [None]
  - HEPATIC ENZYME INCREASED [None]
  - HEPATOTOXICITY [None]
  - HERPES SIMPLEX [None]
  - HYPERTENSION [None]
  - HYPOTENSION [None]
  - LUNG INFILTRATION [None]
  - MUCOSAL INFLAMMATION [None]
  - NEUTROPENIA [None]
  - PANCREATITIS [None]
  - PYREXIA [None]
  - RENAL FAILURE ACUTE [None]
  - VOMITING [None]
